FAERS Safety Report 13313337 (Version 1)
Quarter: 2017Q1

REPORT INFORMATION
  Report Type: Spontaneous
  Country: CN (occurrence: CN)
  Receive Date: 20170309
  Receipt Date: 20170309
  Transmission Date: 20170428
  Serious: Yes (Other)
  Sender: FDA-Public Use
  Company Number: CN-PFIZER INC-2017100127

PATIENT
  Age: 28 Year
  Sex: Female
  Weight: 50 kg

DRUGS (2)
  1. TYLENOL [Concomitant]
     Active Substance: ACETAMINOPHEN
     Indication: PYREXIA
     Dosage: 1 DF, 2X/DAY
     Route: 048
     Dates: start: 20161216, end: 20161217
  2. CELEBREX [Suspect]
     Active Substance: CELECOXIB
     Indication: PYREXIA
     Dosage: 0.2 G, 1X/DAY
     Route: 048
     Dates: start: 20161212, end: 20161216

REACTIONS (3)
  - Rash [Recovering/Resolving]
  - Hypotension [Recovering/Resolving]
  - Product use issue [Unknown]

NARRATIVE: CASE EVENT DATE: 20161216
